FAERS Safety Report 14892391 (Version 4)
Quarter: 2018Q2

REPORT INFORMATION
  Report Type: Spontaneous
  Country: US (occurrence: US)
  Receive Date: 20180514
  Receipt Date: 20180630
  Transmission Date: 20180711
  Serious: No
  Sender: FDA-Public Use
  Company Number: US-UNITED THERAPEUTICS-UNT-2017-017388

PATIENT
  Age: 57 Year
  Sex: Female

DRUGS (8)
  1. REMODULIN [Suspect]
     Active Substance: TREPROSTINIL
     Indication: PRODUCT USED FOR UNKNOWN INDICATION
     Dosage: 0.056 ML/HR
     Route: 058
  2. AMBRISENTAN [Suspect]
     Active Substance: AMBRISENTAN
     Indication: PULMONARY HYPERTENSION
     Dosage: 10 MG, QD
     Route: 065
     Dates: start: 20171017
  3. ADCIRCA [Suspect]
     Active Substance: TADALAFIL
     Dosage: 40 MG, QD
     Route: 065
     Dates: start: 20171017
  4. AMBRISENTAN [Suspect]
     Active Substance: AMBRISENTAN
     Dosage: 5 MG, QD
     Route: 065
     Dates: start: 20171017, end: 20180322
  5. ADCIRCA [Suspect]
     Active Substance: TADALAFIL
     Indication: PULMONARY HYPERTENSION
     Dosage: 20 MG, BID
     Route: 065
  6. ORENITRAM [Suspect]
     Active Substance: TREPROSTINIL
     Dosage: 3.25 MG, TID
     Route: 048
     Dates: start: 20171231
  7. ORENITRAM [Suspect]
     Active Substance: TREPROSTINIL
     Indication: PRODUCT USED FOR UNKNOWN INDICATION
     Dosage: 3.625 MG, BID
     Route: 048
     Dates: end: 20171231
  8. AMBRISENTAN [Suspect]
     Active Substance: AMBRISENTAN
     Dosage: UNK
     Route: 065
     Dates: start: 20180511

REACTIONS (8)
  - Vomiting [Unknown]
  - Irritability [Unknown]
  - Nausea [Unknown]
  - Headache [Unknown]
  - Peripheral swelling [Not Recovered/Not Resolved]
  - Dyspnoea [Unknown]
  - Flushing [Unknown]
  - Joint swelling [Not Recovered/Not Resolved]
